FAERS Safety Report 7273964-9 (Version None)
Quarter: 2011Q1

REPORT INFORMATION
  Report Type: 
  Country: None (occurrence: None)
  Receive Date: 20110203
  Receipt Date: 20110124
  Transmission Date: 20110831
  Serious: Yes (Hospitalization, Other)
  Sender: FDA-Public Use
  Company Number: US-MERCK-1009USA05573

PATIENT
  Age: 64 Year
  Sex: Female
  Weight: 109 kg

DRUGS (4)
  1. FOSAMAX [Suspect]
     Route: 048
     Dates: start: 20080302, end: 20080921
  2. FOSAMAX PLUS D [Suspect]
     Route: 048
     Dates: start: 20010419, end: 20080116
  3. FOSAMAX [Suspect]
     Route: 048
     Dates: start: 19960901, end: 20010320
  4. FOSAMAX [Suspect]
     Indication: OSTEOPOROSIS
     Route: 048
     Dates: start: 20010101, end: 20080101

REACTIONS (20)
  - OSTEOARTHRITIS [None]
  - RIB FRACTURE [None]
  - HEAD INJURY [None]
  - BLOOD CHOLESTEROL INCREASED [None]
  - FEMUR FRACTURE [None]
  - OSTEONECROSIS [None]
  - THYROID NEOPLASM [None]
  - FRACTURE [None]
  - ARTHROPATHY [None]
  - APHTHOUS STOMATITIS [None]
  - OVERDOSE [None]
  - TOOTH DISORDER [None]
  - HYPERTENSION [None]
  - ARRHYTHMIA [None]
  - BONE DENSITY DECREASED [None]
  - GLAUCOMA [None]
  - GINGIVAL BLEEDING [None]
  - OSTEONECROSIS OF JAW [None]
  - GINGIVAL RECESSION [None]
  - FALL [None]
